FAERS Safety Report 13342778 (Version 3)
Quarter: 2017Q1

REPORT INFORMATION
  Report Type: Report from Study
  Country: BG (occurrence: BG)
  Receive Date: 20170316
  Receipt Date: 20170331
  Transmission Date: 20170428
  Serious: Yes (Other)
  Sender: FDA-Public Use
  Company Number: PHHY2017BG035353

PATIENT
  Age: 28 Year
  Sex: Female
  Weight: 60 kg

DRUGS (2)
  1. EXJADE [Suspect]
     Active Substance: DEFERASIROX
     Indication: IRON OVERLOAD
     Dosage: 30 MG/KG, QD
     Route: 048
     Dates: start: 2010
  2. EXJADE [Suspect]
     Active Substance: DEFERASIROX
     Dosage: 30 MG/KG, QD
     Route: 048

REACTIONS (5)
  - Tonsillitis [Recovered/Resolved]
  - Pharyngitis [Unknown]
  - Oropharyngeal pain [Unknown]
  - Tonsillar erythema [Unknown]
  - Tonsillar hypertrophy [Unknown]

NARRATIVE: CASE EVENT DATE: 201609
